FAERS Safety Report 16116474 (Version 2)
Quarter: 2020Q1

REPORT INFORMATION
  Report Type: Report from Study
  Country: US (occurrence: US)
  Receive Date: 20190326
  Receipt Date: 20200204
  Transmission Date: 20200409
  Serious: Yes (Other)
  Sender: FDA-Public Use
  Company Number: US-ROCHE-2267929

PATIENT
  Age: 52 Year
  Sex: Male

DRUGS (1)
  1. OCREVUS [Suspect]
     Active Substance: OCRELIZUMAB
     Indication: PRIMARY PROGRESSIVE MULTIPLE SCLEROSIS
     Dosage: MOST RECENT DOSE: 23/JUL/2018
     Route: 042
     Dates: start: 20170809, end: 20190313

REACTIONS (5)
  - Diarrhoea [Not Recovered/Not Resolved]
  - Malaise [Recovered/Resolved]
  - Ankle fracture [Not Recovered/Not Resolved]
  - Fall [Unknown]
  - Urinary tract infection [Recovered/Resolved]

NARRATIVE: CASE EVENT DATE: 201902
